FAERS Safety Report 8098285-6 (Version None)
Quarter: 2012Q1

REPORT INFORMATION
  Report Type: 
  Country: None (occurrence: None)
  Receive Date: 20120128
  Receipt Date: 20110824
  Transmission Date: 20120608
  Serious: No
  Sender: FDA-Public Use
  Company Number: US-ABBOTT-11P-163-0844687-00

PATIENT
  Age: 32 Year
  Sex: Female

DRUGS (11)
  1. PENTASA [Concomitant]
     Indication: CROHN'S DISEASE
  2. DICYCLOMINE [Concomitant]
     Indication: CROHN'S DISEASE
     Dosage: 1 TABLET BEFORE MEALS AND AT BEDTIME
  3. VICODIN [Concomitant]
     Indication: ABDOMINAL PAIN
  4. MECLIZINE [Concomitant]
     Indication: DIZZINESS
     Dosage: TID, PRN
  5. VICODIN [Suspect]
     Indication: PAIN
  6. OMEPRAZOLE [Concomitant]
     Indication: CROHN'S DISEASE
  7. DOCUSATE SODIUM [Concomitant]
     Indication: SUPPLEMENTATION THERAPY
     Dosage: 4-5 TIMES PER DAY
  8. PROMETHAZINE [Concomitant]
     Indication: NAUSEA
     Dosage: PRN
  9. NAPROXEN (ALEVE) [Concomitant]
     Indication: PAIN
  10. HUMIRA [Suspect]
     Indication: CROHN'S DISEASE
     Dates: start: 20110521, end: 20110701
  11. BIG 100 VITAMIN B [Concomitant]
     Indication: VITAMIN SUPPLEMENTATION
     Dosage: DAILY

REACTIONS (6)
  - VOMITING [None]
  - EUPHORIC MOOD [None]
  - ABDOMINAL PAIN [None]
  - INJECTION SITE PAIN [None]
  - MEMORY IMPAIRMENT [None]
  - PAIN [None]
